FAERS Safety Report 19366577 (Version 1)
Quarter: 2021Q2

REPORT INFORMATION
  Report Type: Other
  Country: GB (occurrence: GB)
  Receive Date: 20210603
  Receipt Date: 20210603
  Transmission Date: 20210717
  Serious: Yes (Other)
  Sender: FDA-Public Use
  Company Number: GB-STRIDES ARCOLAB LIMITED-2021SP006081

PATIENT
  Age: 36 Year
  Sex: Female

DRUGS (4)
  1. ERGOCALCIFEROL. [Suspect]
     Active Substance: ERGOCALCIFEROL
     Indication: PRODUCT USED FOR UNKNOWN INDICATION
     Dosage: 2 TABLETS, ONCE A WEEK
     Route: 065
     Dates: start: 202105
  2. PFIZER?BIONTECH COVID?19 VACCINE [Suspect]
     Active Substance: TOZINAMERAN
     Indication: PRODUCT USED FOR UNKNOWN INDICATION
     Dosage: UNK, DOSE 1
     Route: 065
     Dates: start: 20210529
  3. STEXEROL D3 [Concomitant]
     Indication: VITAMIN SUPPLEMENTATION
     Dosage: UNK
     Route: 065
     Dates: start: 20210514
  4. MOMETASONE FUROATE. [Concomitant]
     Active Substance: MOMETASONE FUROATE
     Indication: SINUS PAIN
     Dosage: UNK
     Route: 065
     Dates: start: 20201215

REACTIONS (9)
  - Asthenia [Unknown]
  - Nausea [Recovered/Resolved]
  - Insomnia [Unknown]
  - Gait disturbance [Unknown]
  - Myalgia [Recovered/Resolved]
  - Dizziness [Recovered/Resolved]
  - Wheezing [Recovered/Resolved]
  - Cystic lymphangioma [Unknown]
  - Cough [Unknown]

NARRATIVE: CASE EVENT DATE: 202105
